FAERS Safety Report 16431886 (Version 1)
Quarter: 2019Q2

REPORT INFORMATION
  Report Type: Spontaneous
  Country: CN (occurrence: CN)
  Receive Date: 20190614
  Receipt Date: 20190614
  Transmission Date: 20190711
  Serious: Yes (Other)
  Sender: FDA-Public Use
  Company Number: CN-BAYER-2019-111637

PATIENT
  Age: 57 Year
  Sex: Male
  Weight: 63 kg

DRUGS (1)
  1. AVELOX [Suspect]
     Active Substance: MOXIFLOXACIN HYDROCHLORIDE
     Indication: ANTI-INFECTIVE THERAPY
     Dosage: 250 ML, QD
     Route: 041
     Dates: start: 20190528, end: 20190601

REACTIONS (6)
  - Patient uncooperative [Recovering/Resolving]
  - Confusional state [Recovering/Resolving]
  - Mental status changes [Recovering/Resolving]
  - Speech disorder [Recovering/Resolving]
  - Delirium [Recovering/Resolving]
  - Nervous system disorder [Recovering/Resolving]

NARRATIVE: CASE EVENT DATE: 20190601
